FAERS Safety Report 10375494 (Version 2)
Quarter: 2014Q4

REPORT INFORMATION
  Report Type: Spontaneous
  Country: US (occurrence: US)
  Receive Date: 20140811
  Receipt Date: 20141023
  Transmission Date: 20150528
  Serious: No
  Sender: FDA-Public Use
  Company Number: US-PFIZER INC-2014219268

PATIENT
  Age: 65 Year
  Sex: Female

DRUGS (3)
  1. INLYTA [Suspect]
     Active Substance: AXITINIB
     Indication: NEOPLASM MALIGNANT
     Dosage: 7 MG, 2X/DAY
     Route: 048
     Dates: start: 201306, end: 201308
  2. INLYTA [Suspect]
     Active Substance: AXITINIB
     Dosage: 5 MG, 2X/DAY
     Route: 048
     Dates: start: 201309, end: 201403
  3. INLYTA [Suspect]
     Active Substance: AXITINIB
     Dosage: 5 MG, 2X/DAY
     Route: 048
     Dates: start: 20140320, end: 201405

REACTIONS (3)
  - General physical health deterioration [Unknown]
  - Diarrhoea [Recovered/Resolved with Sequelae]
  - Toxicity to various agents [Unknown]

NARRATIVE: CASE EVENT DATE: 201309
